FAERS Safety Report 16698738 (Version 1)
Quarter: 2019Q3

REPORT INFORMATION
  Report Type: Spontaneous
  Country: US (occurrence: US)
  Receive Date: 20190813
  Receipt Date: 20190813
  Transmission Date: 20191004
  Serious: Yes (Hospitalization)
  Sender: FDA-Public Use
  Company Number: US-TEVA-2019-US-1090582

PATIENT
  Age: 67 Year
  Sex: Male

DRUGS (4)
  1. LEFLUNOMIDE. [Suspect]
     Active Substance: LEFLUNOMIDE
     Indication: PSORIATIC ARTHROPATHY
     Dosage: 20 MILLIGRAM DAILY;
     Route: 065
  2. COLESTYRAMINE [Suspect]
     Active Substance: CHOLESTYRAMINE
     Indication: DRUG-INDUCED LIVER INJURY
     Dosage: 2 GRAM DAILY;
     Route: 065
  3. URSODEOXYCHOLIC ACID [Suspect]
     Active Substance: URSODIOL
     Indication: DRUG-INDUCED LIVER INJURY
     Dosage: 13 MG/KG DAILY; FOR 4 WEEKS
     Route: 065
  4. PREDNISONE. [Suspect]
     Active Substance: PREDNISONE
     Indication: DRUG-INDUCED LIVER INJURY
     Dosage: 40 MILLIGRAM DAILY;
     Route: 065

REACTIONS (5)
  - Ascites [Recovered/Resolved]
  - Therapy non-responder [Unknown]
  - Hepatic failure [Recovered/Resolved]
  - Encephalopathy [Recovering/Resolving]
  - Drug-induced liver injury [Recovered/Resolved]
